FAERS Safety Report 6553591-9 (Version None)
Quarter: 2010Q1

REPORT INFORMATION
  Report Type: 
  Country: None (occurrence: None)
  Receive Date: 20100127
  Receipt Date: 20100119
  Transmission Date: 20100710
  Serious: Yes (Hospitalization)
  Sender: FDA-Public Use
  Company Number: DE-ASTRAZENECA-2010SE02381

PATIENT
  Age: 36 Year
  Sex: Male

DRUGS (10)
  1. SEROQUEL [Suspect]
     Route: 048
     Dates: start: 20051018, end: 20051018
  2. SEROQUEL [Suspect]
     Route: 048
     Dates: start: 20051019, end: 20051019
  3. SEROQUEL [Suspect]
     Route: 048
     Dates: start: 20051020, end: 20051103
  4. SEROQUEL [Suspect]
     Route: 048
     Dates: start: 20051104, end: 20051104
  5. HALDOL [Concomitant]
     Route: 065
     Dates: start: 20051020, end: 20051026
  6. HALDOL [Concomitant]
     Route: 065
     Dates: start: 20051027, end: 20051113
  7. HALDOL [Concomitant]
     Route: 065
     Dates: start: 20051114, end: 20051115
  8. LEPONEX [Concomitant]
     Route: 065
     Dates: start: 20051102, end: 20051102
  9. LEPONEX [Concomitant]
     Route: 065
     Dates: start: 20051103, end: 20051103
  10. LEPONEX [Concomitant]
     Route: 065
     Dates: start: 20051114

REACTIONS (2)
  - HEPATIC FUNCTION ABNORMAL [None]
  - TRANSAMINASES INCREASED [None]
